FAERS Safety Report 8139904-5 (Version None)
Quarter: 2012Q1

REPORT INFORMATION
  Report Type: 
  Country: None (occurrence: None)
  Receive Date: 20120215
  Receipt Date: 20120201
  Transmission Date: 20120608
  Serious: Yes (Death, Hospitalization)
  Sender: FDA-Public Use
  Company Number: DE-ROCHE-756866

PATIENT
  Sex: Male

DRUGS (7)
  1. RITUXIMAB [Suspect]
     Indication: CHRONIC LYMPHOCYTIC LEUKAEMIA
     Route: 042
     Dates: start: 20070101, end: 20080701
  2. ENOXAPARIN SODIUM [Concomitant]
     Route: 058
     Dates: start: 20110112
  3. CYCLOPHOSPHAMIDE [Concomitant]
     Indication: CHRONIC LYMPHOCYTIC LEUKAEMIA
     Dates: start: 20080108, end: 20090722
  4. FLUDARABINE PHOSPHATE [Concomitant]
     Indication: B-CELL LYMPHOMA
  5. RITUXIMAB [Suspect]
     Dosage: SOLUTION
     Route: 042
     Dates: start: 20081001, end: 20100922
  6. PANTOPRAZOLE [Concomitant]
     Indication: GASTRITIS PROPHYLAXIS
     Route: 048
     Dates: start: 20110112
  7. ACETAMINOPHEN [Concomitant]
     Indication: PAIN
     Dates: start: 20110201

REACTIONS (5)
  - VISUAL ACUITY REDUCED [None]
  - PARESIS [None]
  - ATAXIA [None]
  - ENCEPHALITIS [None]
  - APHASIA [None]
